FAERS Safety Report 19086430 (Version 1)
Quarter: 2021Q2

REPORT INFORMATION
  Report Type: Spontaneous
  Country: US (occurrence: US)
  Receive Date: 20210402
  Receipt Date: 20210402
  Transmission Date: 20210717
  Serious: No
  Sender: FDA-Public Use
  Company Number: US-BAYER-2021-116454

PATIENT
  Age: 81 Year
  Sex: Male

DRUGS (2)
  1. MAGNESIUM [Suspect]
     Active Substance: MAGNESIUM
  2. MIRALAX [Suspect]
     Active Substance: POLYETHYLENE GLYCOL 3350
     Dosage: 17 GRAMS DOSE
     Route: 048

REACTIONS (1)
  - Drug ineffective [Unknown]
